FAERS Safety Report 4890019-9 (Version None)
Quarter: 2006Q1

REPORT INFORMATION
  Report Type: 
  Country: None (occurrence: None)
  Receive Date: 20060124
  Receipt Date: 20060109
  Transmission Date: 20060701
  Serious: Yes (Other)
  Sender: FDA-Public Use
  Company Number: RO-ROCHE-431450

PATIENT
  Age: 59 Year
  Sex: Female

DRUGS (3)
  1. PEGASYS [Suspect]
     Route: 058
     Dates: start: 20040615, end: 20050615
  2. PEGASYS [Suspect]
     Route: 058
  3. COPEGUS [Concomitant]
     Route: 048
     Dates: start: 20040615, end: 20050615

REACTIONS (1)
  - NODULE [None]
